FAERS Safety Report 9257599 (Version 2)
Quarter: 2013Q2

REPORT INFORMATION
  Report Type: Spontaneous
  Country: JP (occurrence: JP)
  Receive Date: 20130426
  Receipt Date: 20130510
  Transmission Date: 20140414
  Serious: Yes (Death, Other)
  Sender: FDA-Public Use
  Company Number: JP-PFIZER INC-2013127416

PATIENT
  Age: 85 Year
  Sex: Female
  Weight: 45.2 kg

DRUGS (2)
  1. ZYVOX [Suspect]
     Indication: STAPHYLOCOCCAL SEPSIS
     Dosage: 600 MG, 2X/DAY
     Route: 041
     Dates: start: 20130419, end: 20130422
  2. VANCOMYCIN [Concomitant]
     Indication: STAPHYLOCOCCAL SEPSIS
     Dosage: 1000 MG, ALTERNATE DAY
     Route: 041
     Dates: start: 20130404, end: 20130419

REACTIONS (3)
  - Asthma [Recovering/Resolving]
  - Haemoptysis [Fatal]
  - Acute respiratory distress syndrome [Fatal]
